FAERS Safety Report 9524135 (Version 1)
Quarter: 2013Q1

REPORT INFORMATION
  Report Type: Spontaneous
  Country: US (occurrence: None)
  Receive Date: 20130314
  Receipt Date: 20130314
  Transmission Date: 20140127
  Serious: No
  Sender: FDA-Public Use
  Company Number: 1302USA000710

PATIENT
  Sex: Female

DRUGS (3)
  1. VICTRELIS (BOCEPREVIR) CAPSULE, 200MG [Suspect]
     Indication: HEPATITIS C
     Dosage: 4 DF, TID 800 MG TID, ORAL
     Route: 048
  2. RIBAVIRIN (RIBAVIRIN) TABLET, 200 MG [Suspect]
  3. INTERFERON (UNSPECIFIED) [Suspect]

REACTIONS (2)
  - Nausea [None]
  - Vomiting [None]
